FAERS Safety Report 7960540-5 (Version None)
Quarter: 2011Q4

REPORT INFORMATION
  Report Type: 
  Country: None (occurrence: None)
  Receive Date: 20111206
  Receipt Date: 20111128
  Transmission Date: 20120403
  Serious: Yes (Death, Hospitalization)
  Sender: FDA-Public Use
  Company Number: GXBR2011US03012

PATIENT
  Sex: Female
  Weight: 74.83 kg

DRUGS (11)
  1. TRAMADOL HCL [Concomitant]
     Indication: ARTHRITIS
     Dosage: UNK MG, UNK
  2. DIOVAN HCT [Concomitant]
     Indication: HYPERTENSION
     Dosage: VALSARTAN 320MG AND HYDROCHLOROTHIAZIDE 25 MG, ONCE DAILY
     Route: 048
  3. AMIODARONE HYDROCHLORIDE [Suspect]
     Indication: ATRIAL FIBRILLATION
     Dosage: 200 MG, QD2SDO
     Route: 048
     Dates: start: 20110526, end: 20110601
  4. TRICOR [Concomitant]
     Indication: BLOOD CHOLESTEROL INCREASED
     Dosage: UNK DF, UNK
  5. AMIODARONE HYDROCHLORIDE [Suspect]
     Dosage: 200 MG, QD
     Route: 048
  6. VITAMIN D [Concomitant]
     Indication: SUPPLEMENTATION THERAPY
     Dosage: UNK DF, UNK
  7. METFORMIN HCL [Concomitant]
     Indication: DIABETES MELLITUS
     Dosage: 1000 MG, BID
     Route: 048
  8. MULTI-VITAMINS [Concomitant]
     Indication: SUPPLEMENTATION THERAPY
     Dosage: UNK DF, UNK
  9. NIASPAN [Concomitant]
     Dosage: 500 MG, QD
     Route: 048
  10. METOPROLOL TARTRATE [Concomitant]
     Indication: HYPERTENSION
     Dosage: UNK MG, UNK
  11. LASIX [Concomitant]
     Indication: OEDEMA
     Dosage: 40 MG, QD
     Route: 048

REACTIONS (9)
  - BACK PAIN [None]
  - CHROMATURIA [None]
  - HEART RATE DECREASED [None]
  - RENAL FAILURE [None]
  - ASTHENIA [None]
  - CARDIOGENIC SHOCK [None]
  - HEPATIC FAILURE [None]
  - HEPATIC ENZYME INCREASED [None]
  - OXYGEN SATURATION DECREASED [None]
